FAERS Safety Report 6049453-6 (Version None)
Quarter: 2009Q1

REPORT INFORMATION
  Report Type: 
  Country: None (occurrence: None)
  Receive Date: 20090121
  Receipt Date: 20090105
  Transmission Date: 20090719
  Serious: Yes (Other)
  Sender: FDA-Public Use
  Company Number: 6048214

PATIENT
  Sex: Female

DRUGS (1)
  1. BISOPROLOL-RATIOPHARM COMP. 5/12,5 MG (FILM-COATED TABLET) (HYDROCHLOR [Suspect]
     Indication: HYPERTENSION
     Dosage: ORAL
     Route: 048
     Dates: start: 20070101

REACTIONS (1)
  - BLOOD PRESSURE SYSTOLIC INCREASED [None]
